FAERS Safety Report 16886363 (Version 2)
Quarter: 2020Q1

REPORT INFORMATION
  Report Type: Spontaneous
  Country: US (occurrence: US)
  Receive Date: 20191004
  Receipt Date: 20200223
  Transmission Date: 20200409
  Serious: Yes (Other)
  Sender: FDA-Public Use
  Company Number: US-ASTRAZENECA-2019SF40536

PATIENT
  Age: 627 Month
  Sex: Female
  Weight: 75.8 kg

DRUGS (47)
  1. PRILOSEC [Suspect]
     Active Substance: OMEPRAZOLE MAGNESIUM
     Route: 048
     Dates: start: 2010, end: 2011
  2. CYCLOBENZAPRINE. [Concomitant]
     Active Substance: CYCLOBENZAPRINE
     Dates: start: 20121211
  3. TERBINAFINE. [Concomitant]
     Active Substance: TERBINAFINE
     Dates: start: 20130730
  4. ARMOUR THYROID [Concomitant]
     Active Substance: THYROID, PORCINE
     Dates: start: 20140104
  5. MORPHINE SULFATE. [Concomitant]
     Active Substance: MORPHINE SULFATE
     Dates: start: 20141029
  6. LEVOTHYROXINE. [Concomitant]
     Active Substance: LEVOTHYROXINE
     Dates: start: 20180102
  7. PREVACID [Suspect]
     Active Substance: LANSOPRAZOLE
     Dosage: 30.0MG UNKNOWN
     Route: 048
     Dates: start: 20121108
  8. PROTONIX [Suspect]
     Active Substance: PANTOPRAZOLE SODIUM
     Route: 065
     Dates: start: 2017, end: 2018
  9. VENLAFAXINE [Concomitant]
     Active Substance: VENLAFAXINE HYDROCHLORIDE
     Dates: start: 20130304
  10. ESTRADIOL. [Concomitant]
     Active Substance: ESTRADIOL
     Dates: start: 20140310
  11. METHYLPREDNISOLONE. [Concomitant]
     Active Substance: METHYLPREDNISOLONE
     Dates: start: 20190205
  12. PRILOSEC OTC [Suspect]
     Active Substance: OMEPRAZOLE MAGNESIUM
     Route: 048
     Dates: start: 2017, end: 2018
  13. PROMETHAZINE [Concomitant]
     Active Substance: PROMETHAZINE HYDROCHLORIDE
     Dates: start: 20130422
  14. POLYMYXIN [Concomitant]
     Active Substance: POLYMYXIN
     Dates: start: 20130501
  15. PROAIR HFA [Concomitant]
     Active Substance: ALBUTEROL SULFATE
     Dates: start: 20130723
  16. HYDROMORPHONE [Concomitant]
     Active Substance: HYDROMORPHONE
     Dates: start: 20190430
  17. SENNOSIDES. [Concomitant]
     Active Substance: SENNOSIDES
     Dates: start: 20190426
  18. PROTONIX [Suspect]
     Active Substance: PANTOPRAZOLE SODIUM
     Route: 065
     Dates: start: 2010, end: 2011
  19. VITAMIN D3 [Concomitant]
     Active Substance: CHOLECALCIFEROL
     Dates: start: 20180102
  20. MODURETIC 5-50 [Concomitant]
     Active Substance: AMILORIDE HYDROCHLORIDE\HYDROCHLOROTHIAZIDE
     Dates: start: 20181113
  21. MUPIROCIN. [Concomitant]
     Active Substance: MUPIROCIN
  22. NEXIUM [Suspect]
     Active Substance: ESOMEPRAZOLE MAGNESIUM
     Route: 048
     Dates: start: 2017, end: 2018
  23. PRILOSEC [Suspect]
     Active Substance: OMEPRAZOLE MAGNESIUM
     Route: 048
     Dates: start: 2017, end: 2018
  24. MELOXICAM. [Concomitant]
     Active Substance: MELOXICAM
     Dates: start: 20131127
  25. METOPROLOL. [Concomitant]
     Active Substance: METOPROLOL
     Dates: start: 20190102
  26. PREGABALIN. [Concomitant]
     Active Substance: PREGABALIN
     Dates: start: 20190611
  27. TRAZODONE [Concomitant]
     Active Substance: TRAZODONE HYDROCHLORIDE
     Dosage: 50.0MG EVERY 8 - 12 HOURS
     Route: 048
  28. PREVACID [Suspect]
     Active Substance: LANSOPRAZOLE
     Route: 065
     Dates: start: 2010, end: 2011
  29. HYDROCODONE [Concomitant]
     Active Substance: HYDROCODONE
     Dates: start: 20130326
  30. AZITHROMYCIN ANHYDROUS. [Concomitant]
     Active Substance: AZITHROMYCIN ANHYDROUS
     Dates: start: 20130326
  31. PROGESTERONE. [Concomitant]
     Active Substance: PROGESTERONE
     Dates: start: 20131107
  32. TIZANIDINE. [Concomitant]
     Active Substance: TIZANIDINE
     Dates: start: 20140117
  33. KENALOG [Concomitant]
     Active Substance: TRIAMCINOLONE ACETONIDE
     Dates: start: 20180424
  34. SENOKOT [Concomitant]
     Active Substance: SENNOSIDES
     Dates: start: 20190430
  35. TRIAMCINOLONE [Concomitant]
     Active Substance: TRIAMCINOLONE
  36. PREVACID [Suspect]
     Active Substance: LANSOPRAZOLE
     Route: 065
     Dates: start: 2017, end: 2018
  37. VITAMIN D2 [Concomitant]
     Active Substance: ERGOCALCIFEROL
     Dates: start: 20130308
  38. FLUTICASONE. [Concomitant]
     Active Substance: FLUTICASONE
     Dates: start: 20130326
  39. LYRICA [Concomitant]
     Active Substance: PREGABALIN
     Dates: start: 20150109
  40. NEXIUM [Suspect]
     Active Substance: ESOMEPRAZOLE MAGNESIUM
     Route: 048
     Dates: start: 2010, end: 2011
  41. PRILOSEC OTC [Suspect]
     Active Substance: OMEPRAZOLE MAGNESIUM
     Route: 048
     Dates: start: 2010, end: 2011
  42. ONDANSETRON [Concomitant]
     Active Substance: ONDANSETRON
     Dates: start: 20121106
  43. TRAMADOL. [Concomitant]
     Active Substance: TRAMADOL
     Dates: start: 20121211
  44. NAPROXEN. [Concomitant]
     Active Substance: NAPROXEN
     Dates: start: 20130205
  45. DICYCLOMINE [Concomitant]
     Active Substance: DICYCLOMINE HYDROCHLORIDE
     Dates: start: 20130325
  46. CHERATUSSIN [Concomitant]
     Active Substance: AMMONIUM CHLORIDE\DEXTROMETHORPHAN\SODIUM CITRATE
     Dates: start: 20130401
  47. GABAPENTIN. [Concomitant]
     Active Substance: GABAPENTIN
     Dates: start: 20140117

REACTIONS (1)
  - Chronic kidney disease [Not Recovered/Not Resolved]

NARRATIVE: CASE EVENT DATE: 201710
